FAERS Safety Report 6237801-3 (Version None)
Quarter: 2009Q2

REPORT INFORMATION
  Report Type: 
  Country: None (occurrence: None)
  Receive Date: 20090617
  Receipt Date: 20090604
  Transmission Date: 20091009
  Serious: Yes (Life-Threatening, Hospitalization, Other)
  Sender: FDA-Public Use
  Company Number: 09GB001177

PATIENT
  Age: 49 Year
  Sex: Female
  Weight: 89 kg

DRUGS (11)
  1. PAROXETINE HCL [Suspect]
     Indication: DEPRESSION
     Dosage: 30 MG, QD
  2. METHYLENE BLUE (METHYLTHIONINIUM CHLORIDE) [Concomitant]
  3. INDOMETHACIN [Concomitant]
  4. DICLOFENAC (DICLOFENAC) [Concomitant]
  5. ONDANSETRON HCL [Concomitant]
  6. PROPOFOL [Concomitant]
  7. ATRACURIUM BESYLATE [Concomitant]
  8. OXYGEN (OXYGEN) [Concomitant]
  9. NITROUS OXIDE W/ OXYGEN [Concomitant]
  10. ENFLURANE (ENFLURANE)Q [Concomitant]
  11. MORPHINE [Concomitant]

REACTIONS (16)
  - ABDOMINAL PAIN [None]
  - ALKALOSIS [None]
  - ARTHRALGIA [None]
  - BLOOD CREATINE PHOSPHOKINASE INCREASED [None]
  - DRUG INTERACTION [None]
  - FATIGUE [None]
  - HEART RATE INCREASED [None]
  - HYPERCALCAEMIA [None]
  - HYPERTENSION [None]
  - LETHARGY [None]
  - MYDRIASIS [None]
  - OCULOGYRIC CRISIS [None]
  - PARATHYROID TUMOUR BENIGN [None]
  - PCO2 INCREASED [None]
  - PO2 INCREASED [None]
  - SEROTONIN SYNDROME [None]
